FAERS Safety Report 12921445 (Version 1)
Quarter: 2016Q4

REPORT INFORMATION
  Report Type: Spontaneous
  Country: US (occurrence: US)
  Receive Date: 20161108
  Receipt Date: 20161108
  Transmission Date: 20170207
  Serious: No
  Sender: FDA-Public Use
  Company Number: US-GLAXOSMITHKLINE-US2016163480

PATIENT
  Sex: Female

DRUGS (1)
  1. ABREVA [Suspect]
     Active Substance: DOCOSANOL
     Indication: APHTHOUS ULCER
     Dosage: UNK, APPLIED ONE TIME

REACTIONS (4)
  - Breast feeding [Unknown]
  - Feeling abnormal [Unknown]
  - Incorrect route of drug administration [Unknown]
  - Intentional product use issue [Unknown]
